FAERS Safety Report 9951152 (Version 3)
Quarter: 2014Q2

REPORT INFORMATION
  Report Type: Spontaneous
  Country: IT (occurrence: IT)
  Receive Date: 20140304
  Receipt Date: 20140417
  Transmission Date: 20141212
  Serious: Yes (Hospitalization)
  Sender: FDA-Public Use
  Company Number: IT-TEVA-465585ISR

PATIENT
  Age: 52 Year
  Sex: Female
  Weight: 96 kg

DRUGS (3)
  1. PACLITAXEL TEVA [Suspect]
     Indication: ENDOMETRIAL ADENOCARCINOMA
     Dosage: 280 MILLIGRAM DAILY;
     Route: 042
     Dates: start: 20140110, end: 20140203
  2. DESAMETASONE FOSFATO HOSPIRA [Concomitant]
     Indication: ADJUVANT THERAPY
     Dosage: 8 MILLIGRAM DAILY;
     Route: 042
     Dates: start: 20140110, end: 20140203
  3. TRIMETON [Concomitant]
     Indication: ADJUVANT THERAPY
     Dosage: 10 MILLIGRAM DAILY;
     Route: 042
     Dates: start: 20140110, end: 20140203

REACTIONS (8)
  - Dyspnoea [Recovered/Resolved]
  - Palpitations [Recovered/Resolved]
  - Urticaria [Recovered/Resolved]
  - Chills [Recovered/Resolved]
  - Abdominal pain [Recovered/Resolved]
  - Loss of consciousness [Recovered/Resolved]
  - Faecal incontinence [Recovered/Resolved]
  - Convulsion [Recovered/Resolved]
